FAERS Safety Report 21939867 (Version 1)
Quarter: 2023Q1

REPORT INFORMATION
  Report Type: Report from Study
  Country: US (occurrence: US)
  Receive Date: 20230201
  Receipt Date: 20230201
  Transmission Date: 20230417
  Serious: No
  Sender: FDA-Public Use
  Company Number: US-EXELIXIS-CABO-22049268

PATIENT
  Sex: Female

DRUGS (12)
  1. CABOMETYX [Suspect]
     Active Substance: CABOZANTINIB S-MALATE
     Indication: Thyroid cancer
     Dosage: 60 MG, QD
     Dates: start: 20220126
  2. CABOMETYX [Suspect]
     Active Substance: CABOZANTINIB S-MALATE
     Dosage: 60 MG, QD
     Dates: end: 20220317
  3. GENTLE LAXATIVE (BISACODYL) [Suspect]
     Active Substance: BISACODYL
     Indication: Constipation
     Dosage: UNK
  4. KEYTRUDA [Concomitant]
     Active Substance: PEMBROLIZUMAB
  5. LEVOTHYROXINE [Concomitant]
     Active Substance: LEVOTHYROXINE
  6. ONDANSETRON [Concomitant]
     Active Substance: ONDANSETRON
  7. ADVIL [Concomitant]
     Active Substance: IBUPROFEN
  8. MAGNESIUM OXIDE [Concomitant]
     Active Substance: MAGNESIUM OXIDE
  9. AMLODIPINE [Concomitant]
     Active Substance: AMLODIPINE BESYLATE
  10. ASPIRIN [Concomitant]
     Active Substance: ASPIRIN
  11. HYDROCODONE BITARTRATE AND ACETAMINOPHEN [Concomitant]
     Active Substance: ACETAMINOPHEN\HYDROCODONE BITARTRATE
  12. FENTANYL [Concomitant]
     Active Substance: FENTANYL
     Dosage: UNK

REACTIONS (12)
  - Vocal cord paralysis [Not Recovered/Not Resolved]
  - Hypersomnia [Not Recovered/Not Resolved]
  - Fatigue [Not Recovered/Not Resolved]
  - Decreased appetite [Not Recovered/Not Resolved]
  - Weight decreased [Unknown]
  - Constipation [Recovering/Resolving]
  - Blood pressure increased [Unknown]
  - Nausea [Recovered/Resolved]
  - Vomiting [Recovered/Resolved]
  - Urinary tract infection [Recovered/Resolved]
  - Abdominal pain upper [Unknown]
  - Diarrhoea [Unknown]
